FAERS Safety Report 18660962 (Version 1)
Quarter: 2020Q4

REPORT INFORMATION
  Report Type: Report from Study
  Country: FR (occurrence: FR)
  Receive Date: 20201224
  Receipt Date: 20201224
  Transmission Date: 20210114
  Serious: Yes (Life-Threatening, Hospitalization)
  Sender: FDA-Public Use
  Company Number: FR-PFIZER INC-2020499577

PATIENT
  Age: 74 Year
  Sex: Male

DRUGS (5)
  1. DIPHENHYDRAMINE. [Concomitant]
     Active Substance: DIPHENHYDRAMINE
     Indication: PREMEDICATION
     Dosage: 50 MG, CYCLIC
     Route: 042
  2. PACLITAXEL. [Suspect]
     Active Substance: PACLITAXEL
     Indication: CHOLANGIOCARCINOMA
     Dosage: 80 MG/M2, CYCLIC (ON D1, D8 AND D15, FOR A MAXIMUM OF 6 CYCLES, 1 CYCLE EQUALS 4 WEEKS, D1-D28)
     Route: 042
  3. TREMELIMUMAB. [Concomitant]
     Active Substance: TREMELIMUMAB
     Indication: CHOLANGIOCARCINOMA
     Dosage: 75 MG, CYCLIC (ON D1 FOR THE FIRST 4 CYCLES)
     Route: 042
  4. METHYLPREDNISOLONE. [Concomitant]
     Active Substance: METHYLPREDNISOLONE
     Indication: PREMEDICATION
     Dosage: UNK UNK, CYCLIC (80-120 MG)
     Route: 042
  5. DURVALUMAB. [Concomitant]
     Active Substance: DURVALUMAB
     Indication: CHOLANGIOCARCINOMA
     Dosage: 1500 MG, CYCLIC (ON D1 OF EACH CYCLE)
     Route: 042

REACTIONS (3)
  - Septic shock [Recovered/Resolved]
  - Interstitial lung disease [Recovered/Resolved]
  - Pneumonia [Recovered/Resolved]
